FAERS Safety Report 20182978 (Version 1)
Quarter: 2021Q4

REPORT INFORMATION
  Report Type: Spontaneous
  Country: US (occurrence: None)
  Receive Date: 20211214
  Receipt Date: 20211214
  Transmission Date: 20220303
  Serious: Yes (Hospitalization)
  Sender: FDA-Public Use
  Company Number: None

PATIENT
  Sex: Female

DRUGS (14)
  1. TASIGNA [Suspect]
     Active Substance: NILOTINIB
     Dosage: FREQUENCY : TWICE A DAY;?
     Route: 048
     Dates: start: 20210226
  2. CHLORPROMAZ TAB [Concomitant]
  3. DEPAKOTE TAB [Concomitant]
  4. DOXEPIN HCL CAP [Concomitant]
  5. FLUOXETINE TAB [Concomitant]
  6. HYDROXYZ HCL TAB [Concomitant]
  7. PEPCID AC TAB [Concomitant]
  8. PROPRANOLOL TAB [Concomitant]
  9. PROZAC CAP [Concomitant]
  10. QUETIAPINE TAB [Concomitant]
  11. SEROQUEL TAB [Concomitant]
  12. TASIGNA [Concomitant]
     Active Substance: NILOTINIB
  13. TRAZODONE TAB [Concomitant]
  14. ZOLPIDEM TAB [Concomitant]

REACTIONS (1)
  - Therapy interrupted [None]
